FAERS Safety Report 4524768-9 (Version None)
Quarter: 2004Q4

REPORT INFORMATION
  Report Type: 
  Country: None (occurrence: None)
  Receive Date: 20041209
  Receipt Date: 20041125
  Transmission Date: 20050328
  Serious: Yes (Life-Threatening, Hospitalization)
  Sender: FDA-Public Use
  Company Number: FABR-10854

PATIENT
  Age: 44 Year
  Sex: Male
  Weight: 48 kg

DRUGS (1)
  1. FABRAZYME [Suspect]
     Indication: FABRY'S DISEASE
     Dosage: I MG/KG Q2WKS IV
     Route: 042
     Dates: start: 20030409, end: 20041017

REACTIONS (6)
  - ANOXIA [None]
  - BRAIN DAMAGE [None]
  - CARDIO-RESPIRATORY ARREST [None]
  - DYSPNOEA [None]
  - ENCEPHALOPATHY [None]
  - INFECTION [None]
